FAERS Safety Report 21056918 (Version 1)
Quarter: 2022Q3

REPORT INFORMATION
  Report Type: Spontaneous
  Country: CN (occurrence: CN)
  Receive Date: 20220708
  Receipt Date: 20220708
  Transmission Date: 20221026
  Serious: Yes (Other)
  Sender: FDA-Public Use
  Company Number: CN-JNJFOC-20220701387

PATIENT
  Age: 61 Year
  Sex: Male

DRUGS (4)
  1. DARZALEX [Suspect]
     Active Substance: DARATUMUMAB
     Indication: Plasma cell myeloma
     Dosage: 400MG D1 500MG D2 900MG D8 D15 D22
     Route: 041
     Dates: start: 20220615, end: 20220622
  2. IXAZOMIB CITRATE [Suspect]
     Active Substance: IXAZOMIB CITRATE
     Indication: Plasma cell myeloma
     Route: 048
     Dates: start: 20220615, end: 20220622
  3. DOXORUBICIN HYDROCHLORIDE [Suspect]
     Active Substance: DOXORUBICIN HYDROCHLORIDE
     Indication: Plasma cell myeloma
     Dosage: D1-2
     Route: 065
     Dates: start: 20220615, end: 20220622
  4. DEXAMETHASONE [Suspect]
     Active Substance: DEXAMETHASONE
     Dosage: D1-2 D8-9 D15-16 D22-23
     Route: 065
     Dates: start: 20220615, end: 20220622

REACTIONS (2)
  - Myelosuppression [Recovering/Resolving]
  - Gastrointestinal toxicity [Recovering/Resolving]
